FAERS Safety Report 16999806 (Version 4)
Quarter: 2020Q1

REPORT INFORMATION
  Report Type: Spontaneous
  Country: US (occurrence: US)
  Receive Date: 20191106
  Receipt Date: 20200225
  Transmission Date: 20200409
  Serious: No
  Sender: FDA-Public Use
  Company Number: US-PFIZER INC-2019480513

PATIENT
  Age: 12 Year
  Sex: Female
  Weight: 17.23 kg

DRUGS (2)
  1. GENOTROPIN [Suspect]
     Active Substance: SOMATROPIN
     Indication: HORMONE LEVEL ABNORMAL
     Dosage: 1 MG, 1X/DAY [ONCE A DAY IN THE EVENING]
     Route: 058
  2. GENOTROPIN [Suspect]
     Active Substance: SOMATROPIN
     Dosage: 1 MG, 1X/DAY [ONCE A DAY IN THE EVENING]
     Route: 058

REACTIONS (4)
  - Product dose omission [Not Recovered/Not Resolved]
  - Headache [Unknown]
  - Device leakage [Unknown]
  - Device issue [Unknown]

NARRATIVE: CASE EVENT DATE: 201911
